FAERS Safety Report 10714654 (Version 1)
Quarter: 2015Q1

REPORT INFORMATION
  Report Type: Spontaneous
  Country: US (occurrence: US)
  Receive Date: 20150115
  Receipt Date: 20150115
  Transmission Date: 20150721
  Serious: No
  Sender: FDA-Public Use
  Company Number: US-ELI_LILLY_AND_COMPANY-US201412007772

PATIENT
  Sex: Female

DRUGS (1)
  1. HUMALOG [Suspect]
     Active Substance: INSULIN LISPRO
     Indication: DIABETES MELLITUS INADEQUATE CONTROL
     Dosage: UNK
     Route: 065
     Dates: start: 2005

REACTIONS (2)
  - Blood glucose decreased [Unknown]
  - Dupuytren^s contracture [Unknown]
